FAERS Safety Report 19721761 (Version 1)
Quarter: 2021Q3

REPORT INFORMATION
  Report Type: Spontaneous
  Country: FR (occurrence: FR)
  Receive Date: 20210819
  Receipt Date: 20210819
  Transmission Date: 20211014
  Serious: Yes (Hospitalization)
  Sender: FDA-Public Use
  Company Number: FR-PFIZER INC-202101017305

PATIENT
  Age: 53 Year
  Sex: Female
  Weight: 51 kg

DRUGS (9)
  1. ALPRAZOLAM. [Suspect]
     Active Substance: ALPRAZOLAM
     Indication: MIXED ANXIETY AND DEPRESSIVE DISORDER
     Dosage: 1 MG, 1X/DAY
     Route: 048
  2. CEFOTAXIME [Suspect]
     Active Substance: CEFOTAXIME SODIUM
     Indication: PYELONEPHRITIS
     Dosage: 3 G, 1X/DAY
     Route: 042
     Dates: start: 20210605, end: 20210610
  3. SPASFON [PHLOROGLUCINOL] [Concomitant]
     Active Substance: PHLOROGLUCINOL
     Dosage: UNK
  4. PARACETAMOL [Concomitant]
     Active Substance: ACETAMINOPHEN
     Dosage: UNK
  5. VENLAFAXINE HCL [Suspect]
     Active Substance: VENLAFAXINE HYDROCHLORIDE
     Indication: DEPRESSION
     Dosage: 150 MG, 1X/DAY
     Route: 048
     Dates: end: 20210608
  6. MOVICOL [MACROGOL 4000;POTASSIUM CHLORIDE;SODIUM BICARBONATE;SODIUM CH [Concomitant]
     Dosage: UNK
  7. OXYCODONE [Suspect]
     Active Substance: OXYCODONE
     Indication: PELVIC PAIN
     Dosage: UNK
     Route: 042
  8. IRBESARTAN. [Concomitant]
     Active Substance: IRBESARTAN
     Dosage: UNK
  9. PRIMPERAN [Concomitant]
     Active Substance: METOCLOPRAMIDE HYDROCHLORIDE
     Dosage: UNK

REACTIONS (1)
  - Encephalopathy [Recovered/Resolved]

NARRATIVE: CASE EVENT DATE: 20210607
